FAERS Safety Report 5216930-7 (Version None)
Quarter: 2007Q1

REPORT INFORMATION
  Report Type: 
  Country: None (occurrence: None)
  Receive Date: 20070119
  Receipt Date: 20070102
  Transmission Date: 20070707
  Serious: Yes (Hospitalization, Disabling)
  Sender: FDA-Public Use
  Company Number: 2006002257

PATIENT
  Age: 80 Year
  Sex: Female

DRUGS (5)
  1. TARCEVA [Suspect]
     Indication: NON-SMALL CELL LUNG CANCER
     Dosage: 150MG (QD), ORAL
     Route: 048
     Dates: start: 20060605, end: 20061104
  2. PROPAFENONE HCL [Concomitant]
  3. ENALAPRIL MALEATE [Concomitant]
  4. SIMVASTATIN (SIMVASTATIN (SIMVASTATIN) [Concomitant]
  5. PENEDIL (FELODIPINE) [Concomitant]

REACTIONS (8)
  - CORNEAL ABSCESS [None]
  - CORNEAL PERFORATION [None]
  - DIARRHOEA [None]
  - EYE PAIN [None]
  - HAIR GROWTH ABNORMAL [None]
  - IATROGENIC INJURY [None]
  - RASH [None]
  - VISUAL ACUITY REDUCED [None]
